FAERS Safety Report 21733022 (Version 2)
Quarter: 2022Q4

REPORT INFORMATION
  Report Type: Spontaneous
  Country: US (occurrence: US)
  Receive Date: 20221215
  Receipt Date: 20221222
  Transmission Date: 20230113
  Serious: No
  Sender: FDA-Public Use
  Company Number: US-LUPIN PHARMACEUTICALS INC.-2022-14336

PATIENT
  Age: 63 Year
  Sex: Male
  Weight: 111.13 kg

DRUGS (1)
  1. QUINAPRIL [Suspect]
     Active Substance: QUINAPRIL
     Indication: Blood pressure abnormal
     Dosage: 20 MILLIGRAM
     Route: 048

REACTIONS (2)
  - Product prescribing error [Unknown]
  - No adverse event [Unknown]
